FAERS Safety Report 14499307 (Version 1)
Quarter: 2018Q1

REPORT INFORMATION
  Report Type: Spontaneous
  Country: LT (occurrence: LT)
  Receive Date: 20180207
  Receipt Date: 20180207
  Transmission Date: 20180509
  Serious: Yes (Other)
  Sender: FDA-Public Use
  Company Number: LT-BAUSCH-BL-2018-003111

PATIENT
  Age: 54 Year
  Sex: Male

DRUGS (4)
  1. FENTANIL [Concomitant]
     Active Substance: FENTANYL
     Indication: ANAESTHESIA
     Route: 042
     Dates: start: 20171123, end: 20171123
  2. DEXAMETHASONE. [Concomitant]
     Active Substance: DEXAMETHASONE
     Indication: ANAESTHESIA
     Route: 042
     Dates: start: 20171123, end: 20171123
  3. MIDAZOLAM [Concomitant]
     Active Substance: MIDAZOLAM HYDROCHLORIDE
     Indication: ANAESTHESIA
     Route: 042
     Dates: start: 20171123, end: 20171123
  4. DICLOFENACO [Suspect]
     Active Substance: DICLOFENAC
     Indication: PERIOPERATIVE ANALGESIA
     Route: 042
     Dates: start: 20171123, end: 20171123

REACTIONS (5)
  - Chest discomfort [Recovered/Resolved]
  - Blood pressure decreased [Recovered/Resolved]
  - Nausea [Recovered/Resolved]
  - Anaphylactic reaction [Recovered/Resolved]
  - Erythema [Recovered/Resolved]

NARRATIVE: CASE EVENT DATE: 20171123
